FAERS Safety Report 8996984 (Version 1)
Quarter: 2013Q1

REPORT INFORMATION
  Report Type: Spontaneous
  Country: US (occurrence: US)
  Receive Date: 20130104
  Receipt Date: 20130104
  Transmission Date: 20140127
  Serious: No
  Sender: FDA-Public Use
  Company Number: US-TEVA-355230USA

PATIENT
  Sex: Female
  Weight: 81.72 kg

DRUGS (10)
  1. AMRIX [Suspect]
     Indication: CONVULSION
     Dosage: 15 MILLIGRAM DAILY; QAM
     Route: 048
     Dates: start: 20120804
  2. AMRIX [Suspect]
     Indication: CEREBROVASCULAR ACCIDENT
  3. LISINOPRIL [Concomitant]
     Dosage: 80 MILLIGRAM DAILY;
     Route: 048
  4. COSOPT [Concomitant]
     Route: 048
  5. INSULIN [Concomitant]
     Dosage: PRN
  6. ARMOUR THYROID [Concomitant]
     Dosage: 0.5 GRAIN
     Route: 048
  7. ASPIRIN [Concomitant]
     Dosage: 325 MILLIGRAM DAILY;
     Route: 048
  8. OMEGA 3 [Concomitant]
  9. CO Q 10 [Concomitant]
  10. MULTIVITAMIN [Concomitant]

REACTIONS (6)
  - Dysphonia [Not Recovered/Not Resolved]
  - Saliva altered [Not Recovered/Not Resolved]
  - Hearing impaired [Not Recovered/Not Resolved]
  - Dry mouth [Not Recovered/Not Resolved]
  - Pain in extremity [Unknown]
  - Drug hypersensitivity [Unknown]
